FAERS Safety Report 8962719 (Version 1)
Quarter: 2012Q4

REPORT INFORMATION
  Report Type: Spontaneous
  Country: GB (occurrence: None)
  Receive Date: 20121206
  Receipt Date: 20121206
  Transmission Date: 20130627
  Serious: Yes (Other)
  Sender: FDA-Public Use
  Company Number: 2012AP004048

PATIENT
  Sex: Male

DRUGS (5)
  1. OMEPRAZOLE (OMEPRAZOLE) [Suspect]
     Indication: ABDOMINAL PAIN
     Dates: start: 201106
  2. DOXYCYCLINE [Suspect]
     Indication: URINARY INFECTION
     Dates: start: 201111
  3. MINOCYCLINE (MINOCYCLINE) [Suspect]
     Indication: DRUG USE FOR UNKNOWN INDICATION
  4. SEROQUEL (QUETIAPINE FUMARATE) [Suspect]
     Indication: ANXIETY
  5. TRIMETHOPRIM (TRIMETHOPRIM) [Concomitant]

REACTIONS (16)
  - Dehydration [None]
  - Skin depigmentation [None]
  - Malaise [None]
  - Gastrooesophageal reflux disease [None]
  - Skin exfoliation [None]
  - Hair colour changes [None]
  - Alopecia [None]
  - Headache [None]
  - Tooth injury [None]
  - Drug ineffective [None]
  - Mass [None]
  - Melanocytic naevus [None]
  - Abdominal discomfort [None]
  - Gastric ulcer [None]
  - Photosensitivity reaction [None]
  - Chromaturia [None]
